FAERS Safety Report 4269680-8 (Version None)
Quarter: 2004Q1

REPORT INFORMATION
  Report Type: 
  Country: None (occurrence: None)
  Receive Date: 20040112
  Receipt Date: 20031230
  Transmission Date: 20041129
  Serious: Yes (Death, Life-Threatening, Hospitalization)
  Sender: FDA-Public Use
  Company Number: CIMD20030004

PATIENT
  Age: 75 Year
  Sex: Male

DRUGS (6)
  1. CIMETIDINE HCL [Suspect]
     Dosage: PO
     Route: 048
     Dates: start: 20020101, end: 20020101
  2. LORAZEPAM [Suspect]
     Dosage: PO
     Route: 048
     Dates: start: 20020101, end: 20020101
  3. HYDROXYZINE [Suspect]
     Dosage: PO
     Route: 048
     Dates: start: 20020101, end: 20020101
  4. LOVASTATIN [Suspect]
     Dosage: PO
     Route: 048
     Dates: start: 20020101, end: 20020101
  5. HYDROCHLOROTHIAZIDE [Suspect]
     Dosage: PO
     Route: 048
     Dates: start: 20020101, end: 20020101
  6. ETHANOL [Suspect]
     Dosage: PO
     Route: 048
     Dates: start: 20020101, end: 20020101

REACTIONS (9)
  - APNOEA [None]
  - BLOOD BICARBONATE DECREASED [None]
  - BLOOD CREATINE PHOSPHOKINASE INCREASED [None]
  - BLOOD POTASSIUM DECREASED [None]
  - COMPLETED SUICIDE [None]
  - HYPOTENSION [None]
  - MULTIPLE DRUG OVERDOSE [None]
  - PULSE ABSENT [None]
  - RENAL FAILURE ACUTE [None]
